FAERS Safety Report 11312244 (Version 2)
Quarter: 2015Q3

REPORT INFORMATION
  Report Type: Spontaneous
  Country: US (occurrence: US)
  Receive Date: 20150727
  Receipt Date: 20150727
  Transmission Date: 20151125
  Serious: Yes (Other)
  Sender: FDA-Public Use
  Company Number: CHPA2015US008583

PATIENT
  Age: 71 Year
  Sex: Male

DRUGS (2)
  1. IBUPROFEN SANDOZ [Suspect]
     Active Substance: IBUPROFEN
     Indication: PRODUCT USED FOR UNKNOWN INDICATION
     Route: 065
  2. VOLTAREN [Suspect]
     Active Substance: DICLOFENAC SODIUM
     Indication: TENDON RUPTURE
     Dosage: UNK, 2 TO 3 TIMES A DAY

REACTIONS (8)
  - Somnolence [Unknown]
  - Therapeutic response unexpected [Unknown]
  - Gastric disorder [Unknown]
  - Pain in extremity [Recovering/Resolving]
  - Product use issue [Unknown]
  - Drug administered at inappropriate site [Unknown]
  - Tendon rupture [Recovering/Resolving]
  - Inappropriate schedule of drug administration [Unknown]

NARRATIVE: CASE EVENT DATE: 201507
